FAERS Safety Report 5888557-5 (Version None)
Quarter: 2008Q3

REPORT INFORMATION
  Report Type: 
  Country: None (occurrence: None)
  Receive Date: 20080918
  Receipt Date: 20080909
  Transmission Date: 20090109
  Serious: Yes (Hospitalization)
  Sender: FDA-Public Use
  Company Number: US-B.I. PHARMACEUTICALS,INC./RIDGEFIELD-2008-BP-14240BP

PATIENT
  Sex: Female
  Weight: 58 kg

DRUGS (2)
  1. DULCOLAX [Suspect]
     Indication: CONSTIPATION
     Route: 048
     Dates: start: 20060101
  2. ARTHRITIS MEDICINE [Concomitant]
     Indication: ARTHRITIS

REACTIONS (5)
  - ABDOMINAL PAIN [None]
  - ANXIETY [None]
  - DEPRESSION [None]
  - DIARRHOEA [None]
  - ULCER HAEMORRHAGE [None]
